FAERS Safety Report 5601524-1 (Version None)
Quarter: 2008Q1

REPORT INFORMATION
  Report Type: 
  Country: None (occurrence: None)
  Receive Date: 20080124
  Receipt Date: 20080118
  Transmission Date: 20080703
  Serious: Yes (Other)
  Sender: FDA-Public Use
  Company Number: GB-JNJFOC-20080104700

PATIENT
  Age: 10 Year
  Sex: Male

DRUGS (1)
  1. CONCERTA [Suspect]
     Indication: ATTENTION DEFICIT/HYPERACTIVITY DISORDER
     Route: 048

REACTIONS (5)
  - CHROMATURIA [None]
  - DIZZINESS [None]
  - FAECES DISCOLOURED [None]
  - HALLUCINATION, VISUAL [None]
  - HYPERACUSIS [None]
